FAERS Safety Report 9435692 (Version 1)
Quarter: 2013Q3

REPORT INFORMATION
  Report Type: Spontaneous
  Country: US (occurrence: US)
  Receive Date: 20130801
  Receipt Date: 20130801
  Transmission Date: 20140515
  Serious: No
  Sender: FDA-Public Use
  Company Number: US-B.I. PHARMACEUTICALS,INC./RIDGEFIELD-2013-BI-22046BP

PATIENT
  Sex: Male
  Weight: 73 kg

DRUGS (8)
  1. PRADAXA [Suspect]
     Indication: PRODUCT USED FOR UNKNOWN INDICATION
     Dosage: 300 MG
     Route: 048
     Dates: start: 2011
  2. SIMVASTATIN [Concomitant]
     Indication: BLOOD CHOLESTEROL INCREASED
     Dosage: 20 MG
     Route: 048
  3. ASPIRIN [Concomitant]
     Dosage: 81 MG
     Route: 048
  4. ATENOLOL [Concomitant]
     Indication: HEART RATE IRREGULAR
     Dosage: 50 MG
     Route: 048
  5. PANTOPRAZOLE [Concomitant]
     Indication: GASTROOESOPHAGEAL REFLUX DISEASE
     Dosage: 4 MG
     Route: 048
  6. ENALAPRIL [Concomitant]
     Indication: HYPERTENSION
     Dosage: 5 MG
     Route: 048
  7. MELOXICAM [Concomitant]
     Indication: ARTHRITIS
     Dosage: 7.5 MG
     Route: 048
  8. DOXAZOSIN [Concomitant]
     Dosage: 1 MG
     Route: 048

REACTIONS (1)
  - Insomnia [Not Recovered/Not Resolved]
